FAERS Safety Report 6120808-4 (Version None)
Quarter: 2009Q1

REPORT INFORMATION
  Report Type: 
  Country: None (occurrence: None)
  Receive Date: 20090312
  Receipt Date: 20090226
  Transmission Date: 20090719
  Serious: Yes (Hospitalization)
  Sender: FDA-Public Use
  Company Number: DSA_33289_2009

PATIENT
  Age: 74 Year
  Sex: Female

DRUGS (11)
  1. ENALAPRIL MALEATE [Suspect]
     Indication: RENAL FAILURE
     Dosage: (10 MG QD ORAL)
     Route: 048
     Dates: start: 20080401
  2. BISOPROLOL (BISOPROLOL) 5 MG [Suspect]
     Indication: HYPERTENSION
     Dosage: (5 MG BID ORAL), (DF ORAL)
     Route: 048
     Dates: end: 20080911
  3. BISOPROLOL (BISOPROLOL) 5 MG [Suspect]
     Indication: HYPERTENSION
     Dosage: (5 MG BID ORAL), (DF ORAL)
     Route: 048
     Dates: start: 20080920
  4. XIPAMIDE (XIPAMIDE) 20 MG [Suspect]
     Indication: HYPERTENSION
     Dosage: (20 MG QD ORAL)
     Route: 048
     Dates: start: 20080401, end: 20080911
  5. TORSEMIDE [Suspect]
     Indication: HYPERTENSION
     Dosage: (5 MG BID ORAL), (5 MG QD ORAL)
     Route: 048
     Dates: start: 20080825, end: 20080913
  6. TORSEMIDE [Suspect]
     Indication: HYPERTENSION
     Dosage: (5 MG BID ORAL), (5 MG QD ORAL)
     Route: 048
     Dates: start: 20080914, end: 20080920
  7. METHOTREXATE [Concomitant]
  8. OMEPRAZOLE [Concomitant]
  9. PHENPROCOUMON [Concomitant]
  10. PREDNISOLONE [Concomitant]
  11. SIMVASTATIN [Concomitant]

REACTIONS (13)
  - ANOREXIA [None]
  - BLOOD PRESSURE SYSTOLIC INCREASED [None]
  - DEHYDRATION [None]
  - DIZZINESS [None]
  - DRUG INTERACTION [None]
  - GASTRIC CYST [None]
  - GASTRITIS HAEMORRHAGIC [None]
  - GENERAL PHYSICAL CONDITION ABNORMAL [None]
  - HYPERCALCAEMIA [None]
  - HYPOKALAEMIA [None]
  - HYPONATRAEMIA [None]
  - HYPOTENSION [None]
  - THYROID HAEMORRHAGE [None]
